FAERS Safety Report 5409407-7 (Version None)
Quarter: 2007Q3

REPORT INFORMATION
  Report Type: 
  Country: None (occurrence: None)
  Receive Date: 20070809
  Receipt Date: 20070807
  Transmission Date: 20080115
  Serious: Yes (Hospitalization)
  Sender: FDA-Public Use
  Company Number: US-BRISTOL-MYERS SQUIBB COMPANY-13870910

PATIENT
  Sex: Male
  Weight: 111 kg

DRUGS (11)
  1. COUMADIN [Suspect]
     Indication: DEEP VEIN THROMBOSIS
     Dosage: START 7.5MG-4 DAYS AND 5MG-3 DAYS; DOSE CHANGE 7.5MG-5 DAYS AND 5 MG-2 DAYS; 06-AUG-2007 10 MG DAILY
     Route: 048
     Dates: start: 19930101
  2. LOVENOX [Concomitant]
  3. ALTACE [Concomitant]
     Route: 048
  4. AMARYL [Concomitant]
     Route: 048
  5. OXYCODONE HCL [Concomitant]
     Route: 048
  6. VALIUM [Concomitant]
     Route: 048
  7. COMBIVENT [Concomitant]
  8. CITRUCEL [Concomitant]
  9. NASONEX [Concomitant]
  10. ACIPHEX [Concomitant]
  11. LIBRAX [Concomitant]
     Route: 048

REACTIONS (2)
  - INTERNATIONAL NORMALISED RATIO DECREASED [None]
  - PNEUMONIA [None]
